FAERS Safety Report 5765405-5 (Version None)
Quarter: 2008Q2

REPORT INFORMATION
  Report Type: 
  Country: None (occurrence: None)
  Receive Date: 20080605
  Receipt Date: 20080521
  Transmission Date: 20081010
  Serious: Yes (Hospitalization)
  Sender: FDA-Public Use
  Company Number: GXKR2008FR04699

PATIENT
  Age: 76 Year
  Sex: Female

DRUGS (5)
  1. ACETYLSALICYLIC ACID SRT [Suspect]
  2. CANDESARTAN CILEXETIL [Concomitant]
  3. DILTIAZEM [Concomitant]
  4. LANSOPRAZOLE [Concomitant]
  5. PRAVASTATIN [Concomitant]

REACTIONS (12)
  - BLOOD PRESSURE SYSTOLIC DECREASED [None]
  - CATHETER RELATED COMPLICATION [None]
  - DYSPHAGIA [None]
  - DYSPNOEA [None]
  - HAEMOGLOBIN DECREASED [None]
  - HAEMORRHAGE [None]
  - MALAISE [None]
  - PELVIC HAEMATOMA [None]
  - PHARYNGEAL HAEMATOMA [None]
  - PHARYNGOLARYNGEAL PAIN [None]
  - SENSATION OF PRESSURE [None]
  - UPPER AIRWAY OBSTRUCTION [None]
